FAERS Safety Report 17406579 (Version 1)
Quarter: 2020Q1

REPORT INFORMATION
  Report Type: Spontaneous
  Country: US (occurrence: US)
  Receive Date: 20200212
  Receipt Date: 20200212
  Transmission Date: 20200409
  Serious: No
  Sender: FDA-Public Use
  Company Number: US-ALLERGAN-1932875US

PATIENT
  Age: 28 Year
  Sex: Female
  Weight: 77.1 kg

DRUGS (5)
  1. VIIBRYD [Suspect]
     Active Substance: VILAZODONE HYDROCHLORIDE
     Dosage: 10 MG, UNKNOWN
     Route: 048
     Dates: start: 201806, end: 201806
  2. VIIBRYD [Suspect]
     Active Substance: VILAZODONE HYDROCHLORIDE
     Dosage: DOSE TITRATED TO 40 MG, QD
     Route: 048
     Dates: start: 201904
  3. VIIBRYD [Suspect]
     Active Substance: VILAZODONE HYDROCHLORIDE
     Indication: DEPRESSION
     Dosage: DOSE TITRATED TO 10 MG, UNKNOWN
     Route: 048
     Dates: end: 201906
  4. VIIBRYD [Suspect]
     Active Substance: VILAZODONE HYDROCHLORIDE
     Indication: ANXIETY
     Dosage: DOSE TITRATED TO 20 MG, UNKNOWN
     Route: 048
  5. VIIBRYD [Suspect]
     Active Substance: VILAZODONE HYDROCHLORIDE
     Dosage: DOSE TITRATED TO 20 MG, QD
     Route: 048
     Dates: start: 201806

REACTIONS (5)
  - Weight increased [Not Recovered/Not Resolved]
  - Nightmare [Recovered/Resolved]
  - Dissociation [Recovered/Resolved]
  - Off label use [Unknown]
  - Psychotic disorder [Recovered/Resolved]

NARRATIVE: CASE EVENT DATE: 201901
